FAERS Safety Report 8609959-X (Version None)
Quarter: 2012Q3

REPORT INFORMATION
  Report Type: 
  Country: None (occurrence: None)
  Receive Date: 20120821
  Receipt Date: 20120808
  Transmission Date: 20120928
  Serious: Yes (Other)
  Sender: FDA-Public Use
  Company Number: GB-MYLANLABS-2012S1016600

PATIENT
  Age: 38 Year
  Sex: Male

DRUGS (1)
  1. FINASTERIDE [Suspect]
     Indication: ANDROGENETIC ALOPECIA

REACTIONS (13)
  - DEPRESSION [None]
  - GYNAECOMASTIA [None]
  - ANXIETY [None]
  - DRUG INEFFECTIVE [None]
  - DEPERSONALISATION [None]
  - HOMELESS [None]
  - SUICIDAL IDEATION [None]
  - DISTURBANCE IN ATTENTION [None]
  - PANIC ATTACK [None]
  - FEMINISATION ACQUIRED [None]
  - IMPAIRED WORK ABILITY [None]
  - SOCIAL PROBLEM [None]
  - HORMONE LEVEL ABNORMAL [None]
